FAERS Safety Report 7914216-0 (Version None)
Quarter: 2011Q4

REPORT INFORMATION
  Report Type: 
  Country: None (occurrence: None)
  Receive Date: 20111115
  Receipt Date: 20111107
  Transmission Date: 20120403
  Serious: Yes (Other)
  Sender: FDA-Public Use
  Company Number: US-US-EMD SERONO, INC.-7094483

PATIENT
  Sex: Female

DRUGS (5)
  1. REMERON [Concomitant]
     Indication: DEPRESSION
     Dates: end: 20110101
  2. PROZAC [Concomitant]
     Indication: DEPRESSION
  3. XANAX [Concomitant]
     Indication: DEPRESSION
  4. REBIF [Suspect]
     Indication: PRODUCT USED FOR UNKNOWN INDICATION
     Route: 058
     Dates: start: 20110624
  5. REMERON [Concomitant]
     Dates: start: 20110101

REACTIONS (5)
  - WEIGHT INCREASED [None]
  - INJECTION SITE PAIN [None]
  - RED BLOOD CELLS URINE POSITIVE [None]
  - HEPATIC ENZYME INCREASED [None]
  - BLOOD GLUCOSE INCREASED [None]
